FAERS Safety Report 9052481 (Version 1)
Quarter: 2013Q1

REPORT INFORMATION
  Report Type: Spontaneous
  Country: CA (occurrence: CA)
  Receive Date: 20130207
  Receipt Date: 20130207
  Transmission Date: 20140127
  Serious: Yes (Other)
  Sender: FDA-Public Use
  Company Number: CA-PFIZER INC-2013049090

PATIENT
  Sex: 0

DRUGS (3)
  1. LYRICA [Suspect]
     Dosage: UNK
  2. LYRICA [Suspect]
     Dosage: 350 MG
     Dates: end: 201301
  3. ZOLOFT [Suspect]
     Dosage: UNK

REACTIONS (4)
  - Cognitive disorder [Unknown]
  - Memory impairment [Unknown]
  - Nausea [Not Recovered/Not Resolved]
  - Sleep disorder [Not Recovered/Not Resolved]
